FAERS Safety Report 25430124 (Version 6)
Quarter: 2025Q4

REPORT INFORMATION
  Report Type: Spontaneous
  Country: US (occurrence: US)
  Receive Date: 20250612
  Receipt Date: 20251010
  Transmission Date: 20260119
  Serious: Yes (Other)
  Sender: PFIZER
  Company Number: US-PFIZER INC-202500076350

PATIENT
  Age: 82 Year
  Sex: Female
  Weight: 68.707 kg

DRUGS (4)
  1. IBRANCE [Suspect]
     Active Substance: PALBOCICLIB
     Indication: Hormone receptor positive breast cancer
     Dosage: 100 MG, CYCLIC (TAKE 1 TABLET DAILY FOR 21 DAYS; WITH OR WITHOUT FOOD ON DAYS 1-21 EVERY 28 DAYS)
     Route: 048
  2. IBRANCE [Suspect]
     Active Substance: PALBOCICLIB
     Indication: Nausea
     Dosage: 100 MG, CYCLIC (1 TABLET DAILY FOR 21 DAYS, WITH OR WITHOUT FOOD ON DAYS 1-21 EVERY 28 DAYS)
     Route: 048
     Dates: start: 20250611
  3. IBRANCE [Suspect]
     Active Substance: PALBOCICLIB
     Indication: Vomiting
  4. IBRANCE [Suspect]
     Active Substance: PALBOCICLIB
     Indication: Chemotherapy

REACTIONS (3)
  - Cerebrovascular accident [Unknown]
  - Memory impairment [Unknown]
  - Throat clearing [Unknown]
